FAERS Safety Report 7355124-6 (Version None)
Quarter: 2011Q1

REPORT INFORMATION
  Report Type: 
  Country: None (occurrence: None)
  Receive Date: 20110316
  Receipt Date: 20110304
  Transmission Date: 20110831
  Serious: Yes (Life-Threatening, Other)
  Sender: FDA-Public Use
  Company Number: DE-ELI_LILLY_AND_COMPANY-DE201101002304

PATIENT
  Sex: Male
  Weight: 105 kg

DRUGS (3)
  1. EFFIENT [Suspect]
     Dosage: 10 MG, MAINTENANCE DOSE
     Route: 048
     Dates: start: 20100326, end: 20100408
  2. EFFIENT [Suspect]
     Indication: IN-STENT CORONARY ARTERY RESTENOSIS
     Dosage: 60 MG, LOADING DOSE
     Route: 048
     Dates: start: 20100326
  3. ASPIRIN [Concomitant]
     Dosage: 100 MG, UNKNOWN
     Dates: start: 20100326

REACTIONS (5)
  - PERICARDIAL HAEMORRHAGE [None]
  - CARDIAC TAMPONADE [None]
  - CARDIAC PERFORATION [None]
  - CARDIAC COMPLICATION ASSOCIATED WITH DEVICE [None]
  - IMPLANT SITE HAEMORRHAGE [None]
